FAERS Safety Report 24975758 (Version 1)
Quarter: 2025Q1

REPORT INFORMATION
  Report Type: Spontaneous
  Country: US (occurrence: US)
  Receive Date: 20250217
  Receipt Date: 20250217
  Transmission Date: 20250408
  Serious: Yes (Death)
  Sender: SPECGX
  Company Number: US-SPECGX-T202500274

PATIENT
  Age: 32 Year
  Sex: Female

DRUGS (6)
  1. FENTANYL CITRATE [Suspect]
     Active Substance: FENTANYL CITRATE
     Indication: Product used for unknown indication
     Route: 048
  2. FENTANYL CITRATE [Suspect]
     Active Substance: FENTANYL CITRATE
     Route: 065
  3. METHAMPHETAMINE [Suspect]
     Active Substance: METHAMPHETAMINE
     Indication: Product used for unknown indication
     Route: 048
  4. METHAMPHETAMINE [Suspect]
     Active Substance: METHAMPHETAMINE
     Route: 065
  5. ARIPIPRAZOLE [Suspect]
     Active Substance: ARIPIPRAZOLE
     Indication: Product used for unknown indication
     Route: 048
  6. ARIPIPRAZOLE [Suspect]
     Active Substance: ARIPIPRAZOLE
     Route: 065

REACTIONS (2)
  - Completed suicide [Fatal]
  - Analgesic drug level increased [Fatal]

NARRATIVE: CASE EVENT DATE: 20230101
